FAERS Safety Report 4457443-X (Version None)
Quarter: 2004Q3

REPORT INFORMATION
  Report Type: 
  Country: None (occurrence: None)
  Receive Date: 20040922
  Receipt Date: 20040903
  Transmission Date: 20050211
  Serious: Yes (Death, Hospitalization, Other)
  Sender: FDA-Public Use
  Company Number: USA030536362

PATIENT
  Age: 81 Year
  Sex: Female
  Weight: 73 kg

DRUGS (17)
  1. FORTEO [Suspect]
     Indication: OSTEOPOROSIS
     Dosage: 20 UG DAY
     Dates: start: 20030217
  2. ZYPREXA [Suspect]
     Indication: AGGRESSION
  3. ALTACE [Concomitant]
  4. THYROID TAB [Concomitant]
  5. ARICEPT [Concomitant]
  6. CALTRATE + D [Concomitant]
  7. CENTRUM [Concomitant]
  8. CORTISONE [Concomitant]
  9. GLUCOSAMINE W/CHONDROITIN SULFATES [Concomitant]
  10. LANOXIN [Concomitant]
  11. LASIX [Concomitant]
  12. MICRO-K(POTASSIUM CHLORIDE) [Concomitant]
  13. TRINALIN [Concomitant]
  14. VERELAN(VERAPAMIL HYDROCHLORIDE) [Concomitant]
  15. VICODIN ES [Concomitant]
  16. XANAX [Concomitant]
  17. ZOLOFT [Concomitant]

REACTIONS (21)
  - ACTIVITIES OF DAILY LIVING IMPAIRED [None]
  - ASTHENIA [None]
  - BLOOD POTASSIUM INCREASED [None]
  - CARDIAC ARREST [None]
  - CARDIAC FAILURE CONGESTIVE [None]
  - CONDITION AGGRAVATED [None]
  - CYANOSIS [None]
  - DIFFICULTY IN WALKING [None]
  - DIZZINESS [None]
  - GENERAL PHYSICAL HEALTH DETERIORATION [None]
  - HYPERKALAEMIA [None]
  - HYPOKINESIA [None]
  - ILL-DEFINED DISORDER [None]
  - INJECTION SITE ERYTHEMA [None]
  - INJECTION SITE HAEMORRHAGE [None]
  - MEDICATION ERROR [None]
  - OVERDOSE [None]
  - PAIN [None]
  - PNEUMOTHORAX [None]
  - POST PROCEDURAL COMPLICATION [None]
  - VASCULAR INSUFFICIENCY [None]
